FAERS Safety Report 21986223 (Version 4)
Quarter: 2023Q1

REPORT INFORMATION
  Report Type: Spontaneous
  Country: DE (occurrence: DE)
  Receive Date: 20230213
  Receipt Date: 20230309
  Transmission Date: 20230417
  Serious: Yes (Other)
  Sender: FDA-Public Use
  Company Number: None

PATIENT
  Age: 58 Year
  Sex: Female
  Weight: 67 kg

DRUGS (1)
  1. DOTAREM [Suspect]
     Active Substance: GADOTERATE MEGLUMINE
     Indication: Magnetic resonance imaging head
     Route: 042
     Dates: start: 20130926, end: 20130926

REACTIONS (26)
  - Bone pain [Not Recovered/Not Resolved]
  - Illness [Unknown]
  - Mast cell activation syndrome [Unknown]
  - Headache [Not Recovered/Not Resolved]
  - Inflammation [Not Recovered/Not Resolved]
  - Dysstasia [Unknown]
  - Sleep disorder [Unknown]
  - Insomnia [Unknown]
  - Skin discolouration [Not Recovered/Not Resolved]
  - Musculoskeletal discomfort [Unknown]
  - Dry eye [Unknown]
  - Alopecia [Unknown]
  - Aquagenic pruritus [Unknown]
  - Gait disturbance [Unknown]
  - Visual impairment [Unknown]
  - Memory impairment [Unknown]
  - Disturbance in attention [Unknown]
  - Chronic fatigue syndrome [Unknown]
  - Pyrexia [Unknown]
  - Feeling of body temperature change [Not Recovered/Not Resolved]
  - Fatigue [Not Recovered/Not Resolved]
  - Malaise [Not Recovered/Not Resolved]
  - Hypersomnia [Unknown]
  - General physical health deterioration [Not Recovered/Not Resolved]
  - Contrast media toxicity [Not Recovered/Not Resolved]
  - Product residue present [Unknown]

NARRATIVE: CASE EVENT DATE: 20230124
